FAERS Safety Report 6557340-X (Version None)
Quarter: 2010Q1

REPORT INFORMATION
  Report Type: 
  Country: None (occurrence: None)
  Receive Date: 20100129
  Receipt Date: 20100119
  Transmission Date: 20100710
  Serious: Yes (Hospitalization, Other)
  Sender: FDA-Public Use
  Company Number: CA-JNJFOC-20090505053

PATIENT
  Age: 36 Year
  Sex: Female
  Weight: 97.52 kg

DRUGS (69)
  1. REMICADE [Suspect]
     Indication: CROHN'S DISEASE
     Route: 042
  2. REMICADE [Suspect]
     Route: 042
  3. REMICADE [Suspect]
     Route: 042
  4. REMICADE [Suspect]
     Route: 042
  5. REMICADE [Suspect]
     Route: 042
  6. REMICADE [Suspect]
     Route: 042
  7. REMICADE [Suspect]
     Route: 042
  8. REMICADE [Suspect]
     Route: 042
  9. REMICADE [Suspect]
     Route: 042
  10. REMICADE [Suspect]
     Route: 042
  11. REMICADE [Suspect]
     Route: 042
  12. REMICADE [Suspect]
     Route: 042
  13. REMICADE [Suspect]
     Route: 042
  14. REMICADE [Suspect]
     Route: 042
  15. REMICADE [Suspect]
     Route: 042
  16. REMICADE [Suspect]
     Route: 042
  17. REMICADE [Suspect]
     Route: 042
  18. REMICADE [Suspect]
     Route: 042
  19. REMICADE [Suspect]
     Route: 042
  20. REMICADE [Suspect]
     Route: 042
  21. REMICADE [Suspect]
     Route: 042
  22. REMICADE [Suspect]
     Route: 042
  23. REMICADE [Suspect]
     Route: 042
  24. REMICADE [Suspect]
     Route: 042
  25. REMICADE [Suspect]
     Route: 042
  26. REMICADE [Suspect]
     Route: 042
  27. REMICADE [Suspect]
     Route: 042
  28. REMICADE [Suspect]
     Route: 042
  29. REMICADE [Suspect]
     Route: 042
  30. REMICADE [Suspect]
     Route: 042
  31. REMICADE [Suspect]
     Route: 042
  32. REMICADE [Suspect]
     Route: 042
  33. REMICADE [Suspect]
     Route: 042
  34. REMICADE [Suspect]
     Route: 042
  35. REMICADE [Suspect]
     Route: 042
  36. REMICADE [Suspect]
     Route: 042
  37. REMICADE [Suspect]
     Route: 042
  38. REMICADE [Suspect]
     Route: 042
  39. REMICADE [Suspect]
     Route: 042
  40. REMICADE [Suspect]
     Route: 042
  41. REMICADE [Suspect]
     Route: 042
  42. REMICADE [Suspect]
     Route: 042
  43. REMICADE [Suspect]
     Route: 042
  44. PREVACID [Concomitant]
  45. CIPRO [Concomitant]
  46. IMURAN [Concomitant]
  47. SALOFALK [Concomitant]
     Dosage: NIGHTLY
  48. IMODIUM [Concomitant]
     Dosage: 1 TO 2 PRN
  49. CENTRUM PROTEGRA [Concomitant]
     Dosage: 1 TO 2 PRN
  50. CALCIUM CARBONATE [Concomitant]
  51. OSTOFORTE [Concomitant]
     Dosage: FRIDAY AM
  52. FOSAMAX [Concomitant]
     Dosage: SATURDAY AM
  53. SYMBICORT [Concomitant]
  54. AMITRIPTYLINE HCL [Concomitant]
     Dosage: NIGHTLY
  55. CITALOPRAM [Concomitant]
     Dosage: IN AM
  56. ATENOLOL [Concomitant]
     Dosage: NIGHTLY
  57. ZOMIG [Concomitant]
  58. ACETAMINOPHEN [Concomitant]
     Dosage: 1 TO 2 PRN
  59. DEMEROL [Concomitant]
     Dosage: 1 TO 2 PRN
  60. GRAVOL TAB [Concomitant]
     Dosage: WITH DEMEROL
  61. HYDROXYZINE [Concomitant]
  62. KENALOG IN ORABASE [Concomitant]
  63. SOLU-CORTEF [Concomitant]
     Indication: PREMEDICATION
     Route: 042
  64. CYCLOBENZAPRINE [Concomitant]
  65. NASONEX [Concomitant]
     Dosage: PRN
  66. BLINK [Concomitant]
     Route: 047
  67. EPIPEN [Concomitant]
     Dosage: CARRY 2
  68. MODULON [Concomitant]
     Dosage: 1/2 HR BEFORE MEALS
  69. MAXERAN [Concomitant]

REACTIONS (3)
  - ARTHRITIS [None]
  - CROHN'S DISEASE [None]
  - SWOLLEN TONGUE [None]
